FAERS Safety Report 23737999 (Version 1)
Quarter: 2024Q2

REPORT INFORMATION
  Report Type: Other
  Country: US (occurrence: None)
  Receive Date: 20240412
  Receipt Date: 20240412
  Transmission Date: 20240716
  Serious: Yes (Other)
  Sender: FDA-Public Use
  Company Number: US-ROCHE-3542752

PATIENT

DRUGS (16)
  1. BEVACIZUMAB [Suspect]
     Active Substance: BEVACIZUMAB
     Indication: Genital neoplasm malignant female
     Route: 042
  2. PACLITAXEL [Suspect]
     Active Substance: PACLITAXEL
     Indication: Genital neoplasm malignant female
     Route: 042
  3. TRASTUZUMAB [Suspect]
     Active Substance: TRASTUZUMAB
     Indication: Genital neoplasm malignant female
     Route: 065
  4. CARBOPLATIN [Suspect]
     Active Substance: CARBOPLATIN
     Indication: Genital neoplasm malignant female
     Route: 065
  5. GEMCITABINE [Suspect]
     Active Substance: GEMCITABINE
     Indication: Genital neoplasm malignant female
     Route: 065
  6. DOXORUBICIN HYDROCHLORIDE [Suspect]
     Active Substance: DOXORUBICIN HYDROCHLORIDE
     Indication: Genital neoplasm malignant female
     Route: 065
  7. CISPLATIN [Suspect]
     Active Substance: CISPLATIN
     Indication: Genital neoplasm malignant female
     Route: 065
  8. IFOSFAMIDE [Suspect]
     Active Substance: IFOSFAMIDE
     Indication: Genital neoplasm malignant female
     Route: 065
  9. CAPECITABINE [Suspect]
     Active Substance: CAPECITABINE
     Indication: Genital neoplasm malignant female
     Route: 065
  10. PEMBROLIZUMAB [Suspect]
     Active Substance: PEMBROLIZUMAB
     Indication: Genital neoplasm malignant female
     Route: 065
  11. LENVATINIB [Suspect]
     Active Substance: LENVATINIB
     Indication: Genital neoplasm malignant female
     Route: 065
  12. AMCASERTIB [Suspect]
     Active Substance: AMCASERTIB
     Indication: Genital neoplasm malignant female
     Route: 065
  13. OLAPARIB [Suspect]
     Active Substance: OLAPARIB
     Indication: Genital neoplasm malignant female
     Route: 065
  14. NIRAPARIB [Suspect]
     Active Substance: NIRAPARIB
     Indication: Genital neoplasm malignant female
     Route: 065
  15. DOXORUBICIN [Suspect]
     Active Substance: DOXORUBICIN
     Indication: Genital neoplasm malignant female
     Route: 065
  16. LETROZOLE [Suspect]
     Active Substance: LETROZOLE
     Indication: Genital neoplasm malignant female
     Route: 065

REACTIONS (38)
  - Cardiac failure [Unknown]
  - Hyponatraemia [Unknown]
  - Pneumonitis [Unknown]
  - Constipation [Unknown]
  - Cough [Unknown]
  - Blood creatinine increased [Unknown]
  - Dry eye [Unknown]
  - Dysgeusia [Unknown]
  - Dyspnoea [Unknown]
  - Pyrexia [Unknown]
  - Gastrooesophageal reflux disease [Unknown]
  - Headache [Unknown]
  - Haematuria [Unknown]
  - Hypocalcaemia [Unknown]
  - Hypokalaemia [Unknown]
  - Hypotension [Unknown]
  - Oedema peripheral [Unknown]
  - Leukocytosis [Unknown]
  - Rash maculo-papular [Unknown]
  - Malaise [Unknown]
  - Muscular weakness [Unknown]
  - Nail discolouration [Unknown]
  - Onychomadesis [Unknown]
  - Nasal congestion [Unknown]
  - Stomatitis [Unknown]
  - Rash pustular [Unknown]
  - Paraesthesia [Unknown]
  - Peripheral sensory neuropathy [Unknown]
  - Platelet count decreased [Unknown]
  - Upper-airway cough syndrome [Unknown]
  - Proteinuria [Unknown]
  - Rash pustular [Unknown]
  - Small intestinal obstruction [Unknown]
  - Vaginal discharge [Unknown]
  - Vaginal haemorrhage [Unknown]
  - Weight increased [Unknown]
  - Weight decreased [Unknown]
  - Lacrimation increased [Unknown]
